FAERS Safety Report 4414897-2 (Version None)
Quarter: 2004Q3

REPORT INFORMATION
  Report Type: 
  Country: None (occurrence: None)
  Receive Date: 20040804
  Receipt Date: 20040527
  Transmission Date: 20050211
  Serious: No
  Sender: FDA-Public Use
  Company Number: US-BRISTOL-MYERS SQUIBB COMPANY-12598496

PATIENT
  Age: 53 Year
  Sex: Male
  Weight: 111 kg

DRUGS (3)
  1. GLUCOVANCE [Suspect]
     Indication: DIABETES MELLITUS
     Dosage: TX STOPPED AND THEN RESTARTED APPROX. ONE MONTH AGO.
     Route: 048
  2. LANTUS [Concomitant]
  3. LISINOPRIL [Concomitant]

REACTIONS (4)
  - ALOPECIA [None]
  - DIARRHOEA [None]
  - DYSPEPSIA [None]
  - STOMACH DISCOMFORT [None]
